FAERS Safety Report 23703428 (Version 2)
Quarter: 2024Q2

REPORT INFORMATION
  Report Type: Spontaneous
  Country: US (occurrence: US)
  Receive Date: 20240403
  Receipt Date: 20240517
  Transmission Date: 20240716
  Serious: No
  Sender: FDA-Public Use
  Company Number: US-PFIZER INC-202400072966

PATIENT
  Age: 70 Year
  Sex: Female
  Weight: 52.16 kg

DRUGS (4)
  1. PREMARIN [Suspect]
     Active Substance: ESTROGENS, CONJUGATED
     Indication: Atrophic vulvovaginitis
     Dosage: 0.5 G, 2X/WEEK (ONE QUARTER OF AN APPLICATOR)
     Dates: start: 202209
  2. PREMARIN [Suspect]
     Active Substance: ESTROGENS, CONJUGATED
     Indication: Urethral prolapse
  3. PREMARIN [Suspect]
     Active Substance: ESTROGENS, CONJUGATED
     Indication: Prophylaxis urinary tract infection
  4. ESTROGENS [Concomitant]
     Active Substance: ESTROGENS
     Indication: Hot flush
     Dosage: 0.3MG CAPSULE DAILY BY MOUTH
     Route: 048

REACTIONS (3)
  - Device use issue [Unknown]
  - Device delivery system issue [Unknown]
  - Off label use [Unknown]

NARRATIVE: CASE EVENT DATE: 20220901
